FAERS Safety Report 9985427 (Version 1)
Quarter: 2014Q1

REPORT INFORMATION
  Report Type: Spontaneous
  Country: US (occurrence: US)
  Receive Date: 20140307
  Receipt Date: 20140307
  Transmission Date: 20141002
  Serious: Yes (Life-Threatening, Hospitalization, Other)
  Sender: FDA-Public Use
  Company Number: US-ABBVIE-14P-163-1209542-00

PATIENT
  Age: 54 Year
  Sex: Male

DRUGS (1)
  1. ANDROGEL [Suspect]
     Indication: BLOOD TESTOSTERONE DECREASED

REACTIONS (7)
  - Physical disability [Unknown]
  - Emotional distress [Unknown]
  - Impaired work ability [Unknown]
  - Pain [Unknown]
  - Anxiety [Unknown]
  - Deep vein thrombosis [Unknown]
  - Pulmonary embolism [Unknown]
